FAERS Safety Report 6578194-1 (Version None)
Quarter: 2010Q1

REPORT INFORMATION
  Report Type: 
  Country: None (occurrence: None)
  Receive Date: 20100211
  Receipt Date: 20100115
  Transmission Date: 20100710
  Serious: Yes (Hospitalization)
  Sender: FDA-Public Use
  Company Number: FR-GENENTECH-297824

PATIENT
  Age: 35 Year
  Sex: Female

DRUGS (3)
  1. XOLAIR [Suspect]
     Indication: ASTHMA
     Dosage: UNK
     Dates: start: 20070101, end: 20080101
  2. XOLAIR [Suspect]
     Dosage: 300 MG, 1/MONTH
     Dates: start: 20090501
  3. XOLAIR [Suspect]
     Dosage: 300 MG, 1/MONTH
     Dates: start: 20100101, end: 20100101

REACTIONS (1)
  - BREAST NEOPLASM [None]
